FAERS Safety Report 16458768 (Version 1)
Quarter: 2019Q2

REPORT INFORMATION
  Report Type: Spontaneous
  Country: US (occurrence: US)
  Receive Date: 20190620
  Receipt Date: 20190620
  Transmission Date: 20190711
  Serious: No
  Sender: FDA-Public Use
  Company Number: US-THERAPEUTICSMD-2019TMD00766

PATIENT
  Sex: Female
  Weight: 58.96 kg

DRUGS (7)
  1. IMVEXXY [Suspect]
     Active Substance: ESTRADIOL
     Indication: VAGINAL DISORDER
     Dosage: 10 ?G, 2X/WEEK (AFTER A SHOWER, UP AND ACTIVE AFTERWARDS)
     Route: 067
     Dates: start: 201902, end: 20190420
  2. BABY ASPIRIN [Concomitant]
     Active Substance: ASPIRIN
  3. PRAVASTATIN. [Concomitant]
     Active Substance: PRAVASTATIN
     Route: 048
  4. VITAMIN D [Concomitant]
     Active Substance: VITAMIN D NOS
     Route: 048
  5. LISINOPRIL. [Concomitant]
     Active Substance: LISINOPRIL
     Dosage: UNK, 2X/DAY
     Route: 048
  6. MELOXICAM. [Concomitant]
     Active Substance: MELOXICAM
     Route: 048
  7. AMLODIPINE [Concomitant]
     Active Substance: AMLODIPINE BESYLATE
     Route: 048

REACTIONS (4)
  - Vulvovaginal pruritus [Recovering/Resolving]
  - Presyncope [Recovered/Resolved]
  - Off label use [Recovered/Resolved]
  - Dizziness [Recovered/Resolved]

NARRATIVE: CASE EVENT DATE: 2019
